FAERS Safety Report 4925805-X (Version None)
Quarter: 2006Q1

REPORT INFORMATION
  Report Type: 
  Country: None (occurrence: None)
  Receive Date: 20060228
  Receipt Date: 20050324
  Transmission Date: 20060701
  Serious: No
  Sender: FDA-Public Use
  Company Number: US-GLAXOSMITHKLINE-A0551126A

PATIENT
  Sex: Female

DRUGS (2)
  1. LAMICTAL [Suspect]
     Indication: BIPOLAR DISORDER
     Dosage: 25MG PER DAY
     Route: 048
     Dates: start: 20050225
  2. ESKALITH CR [Concomitant]
     Dosage: 450MG TWICE PER DAY
     Route: 048

REACTIONS (3)
  - PRURITUS [None]
  - RASH [None]
  - SWELLING FACE [None]
